FAERS Safety Report 4700937-X (Version None)
Quarter: 2005Q2

REPORT INFORMATION
  Report Type: 
  Country: None (occurrence: None)
  Receive Date: 20050628
  Receipt Date: 20050617
  Transmission Date: 20051028
  Serious: Yes (Other)
  Sender: FDA-Public Use
  Company Number: 200515740GDDC

PATIENT
  Age: 40 Year
  Sex: Female

DRUGS (2)
  1. KETEK [Suspect]
     Indication: BRONCHITIS ACUTE
     Route: 048
     Dates: start: 20050302, end: 20050306
  2. KEFLEX [Suspect]
     Indication: URINARY TRACT INFECTION
     Route: 048
     Dates: start: 20050311, end: 20050312

REACTIONS (4)
  - ALPHA 1 FOETOPROTEIN INCREASED [None]
  - DIZZINESS [None]
  - DRUG EXPOSURE DURING PREGNANCY [None]
  - INTRA-UTERINE DEATH [None]
